FAERS Safety Report 17829636 (Version 1)
Quarter: 2020Q2

REPORT INFORMATION
  Report Type: Spontaneous
  Country: BE (occurrence: BE)
  Receive Date: 20200527
  Receipt Date: 20200527
  Transmission Date: 20200714
  Serious: Yes (Hospitalization)
  Sender: FDA-Public Use
  Company Number: BE-HIKMA PHARMACEUTICALS USA INC.-BE-H14001-20-00576

PATIENT
  Age: 62 Year
  Sex: Male
  Weight: 103 kg

DRUGS (5)
  1. IRINOTECAN HCL [Suspect]
     Active Substance: IRINOTECAN HYDROCHLORIDE
     Route: 065
     Dates: start: 20200114
  2. CETUXIMAB. [Suspect]
     Active Substance: CETUXIMAB
     Route: 065
     Dates: start: 20200114, end: 20200114
  3. IRINOTECAN HCL [Suspect]
     Active Substance: IRINOTECAN HYDROCHLORIDE
     Indication: COLORECTAL CANCER METASTATIC
     Route: 065
     Dates: start: 20191223
  4. CETUXIMAB. [Suspect]
     Active Substance: CETUXIMAB
     Indication: COLORECTAL CANCER METASTATIC
     Route: 042
     Dates: start: 20191223, end: 20191223
  5. AVELUMAB [Suspect]
     Active Substance: AVELUMAB
     Indication: COLORECTAL CANCER METASTATIC
     Route: 042
     Dates: start: 20200114, end: 20200114

REACTIONS (2)
  - Acute kidney injury [Recovered/Resolved]
  - Pyelonephritis [Unknown]

NARRATIVE: CASE EVENT DATE: 20200123
